FAERS Safety Report 16077191 (Version 1)
Quarter: 2019Q1

REPORT INFORMATION
  Report Type: Spontaneous
  Country: US (occurrence: US)
  Receive Date: 20190315
  Receipt Date: 20190315
  Transmission Date: 20190418
  Serious: No
  Sender: FDA-Public Use
  Company Number: PHEH2019US010918

PATIENT
  Sex: Female

DRUGS (1)
  1. CLINDAMYCIN. [Suspect]
     Active Substance: CLINDAMYCIN
     Indication: RASH
     Dosage: UNK UNK, QD
     Route: 061
     Dates: start: 20190302

REACTIONS (4)
  - Erythema [Unknown]
  - Pruritus [Unknown]
  - Rash [Unknown]
  - Burning sensation [Unknown]
